FAERS Safety Report 17110821 (Version 1)
Quarter: 2019Q4

REPORT INFORMATION
  Report Type: Report from Study
  Country: None (occurrence: IT)
  Receive Date: 20191204
  Receipt Date: 20191204
  Transmission Date: 20200122
  Serious: Yes (Life-Threatening, Hospitalization)
  Sender: FDA-Public Use
  Company Number: IT-ABBVIE-19P-083-3177781-00

PATIENT
  Sex: Female

DRUGS (2)
  1. IBRUTINIB [Suspect]
     Active Substance: IBRUTINIB
     Indication: MANTLE CELL LYMPHOMA
     Route: 048
     Dates: start: 20181203, end: 20190929
  2. BORTEZOMIB. [Concomitant]
     Active Substance: BORTEZOMIB
     Indication: MANTLE CELL LYMPHOMA
     Route: 058
     Dates: start: 20181203, end: 20190328

REACTIONS (3)
  - Disorientation [Recovered/Resolved]
  - Febrile neutropenia [Recovered/Resolved]
  - Confusional state [Recovered/Resolved]

NARRATIVE: CASE EVENT DATE: 20190929
